FAERS Safety Report 5986747-4 (Version None)
Quarter: 2008Q4

REPORT INFORMATION
  Report Type: 
  Country: None (occurrence: None)
  Receive Date: 20081209
  Receipt Date: 20081112
  Transmission Date: 20090506
  Serious: No
  Sender: FDA-Public Use
  Company Number: US-BAYER-200814391BCC

PATIENT
  Age: 69 Year
  Sex: Male
  Weight: 82 kg

DRUGS (4)
  1. ALEVE [Suspect]
     Indication: ANALGESIA
     Dosage: UNIT DOSE: 220 MG
     Dates: start: 20070501
  2. ASPIRIN [Concomitant]
  3. MEMBER MART MULTI-VITAMIN [Concomitant]
  4. MEMBERS-MART CALCIUM [Concomitant]

REACTIONS (1)
  - SOMNOLENCE [None]
